FAERS Safety Report 9050303 (Version 2)
Quarter: 2013Q2

REPORT INFORMATION
  Report Type: Spontaneous
  Country: BR (occurrence: BR)
  Receive Date: 20130205
  Receipt Date: 20130510
  Transmission Date: 20140414
  Serious: Yes (Other)
  Sender: FDA-Public Use
  Company Number: PHHY2013BR010782

PATIENT
  Age: 64 Year
  Sex: Female

DRUGS (6)
  1. DIOVAN AMLO FIX [Suspect]
     Indication: HYPERTENSION
     Dosage: 1 DF, (320 MG VALS/ 5 MG AMLO) A DAY
     Route: 048
  2. ASPIRINA PREVENT [Concomitant]
     Indication: CORONARY ARTERY INSUFFICIENCY
     Dosage: 1 DF, DAILY
     Route: 048
  3. ATENOLOL [Concomitant]
     Indication: HYPERTENSION
     Dosage: 1 DF, DAILY
     Route: 048
     Dates: start: 2006
  4. VYTORIN [Concomitant]
     Indication: BLOOD CHOLESTEROL ABNORMAL
     Dosage: 1 DF, DAILY
     Route: 048
     Dates: start: 2006
  5. VYTORIN [Concomitant]
     Indication: BLOOD TRIGLYCERIDES ABNORMAL
  6. LEVOTHYROXINE SODIUM [Concomitant]
     Indication: HYPOTHYROIDISM
     Dosage: 1 DF, DAILY
     Route: 048
     Dates: start: 201303

REACTIONS (1)
  - Type 2 diabetes mellitus [Recovering/Resolving]
